FAERS Safety Report 8219019-8 (Version None)
Quarter: 2012Q1

REPORT INFORMATION
  Report Type: 
  Country: None (occurrence: None)
  Receive Date: 20120319
  Receipt Date: 20120312
  Transmission Date: 20120608
  Serious: Yes (Hospitalization, Other)
  Sender: FDA-Public Use
  Company Number: JP-VERTEX PHARMACEUTICALS INC.-AE-2012-002914

PATIENT
  Age: 59 Year
  Sex: Male

DRUGS (3)
  1. REBETOL [Concomitant]
     Indication: HEPATITIS C
     Route: 048
     Dates: start: 20120221
  2. TELAVIC (TELAPREVIR) [Suspect]
     Indication: HEPATITIS C
     Route: 048
     Dates: start: 20120221, end: 20120224
  3. PEG-INTRON [Concomitant]
     Indication: HEPATITIS C
     Route: 051
     Dates: start: 20120221

REACTIONS (1)
  - TOXIC SKIN ERUPTION [None]
